FAERS Safety Report 13624545 (Version 1)
Quarter: 2017Q2

REPORT INFORMATION
  Report Type: Spontaneous
  Country: US (occurrence: US)
  Receive Date: 20170608
  Receipt Date: 20170608
  Transmission Date: 20170830
  Serious: No
  Sender: FDA-Public Use
  Company Number: US-PFIZER INC-2017241751

PATIENT
  Age: 54 Year
  Sex: Female
  Weight: 68.4 kg

DRUGS (3)
  1. LYRICA [Suspect]
     Active Substance: PREGABALIN
     Indication: FIBROMYALGIA
     Dosage: 75 MG, UNK
  2. LYRICA [Suspect]
     Active Substance: PREGABALIN
     Dosage: 75 MG, 2X/DAY
     Route: 048
  3. SKELAXIN [Concomitant]
     Active Substance: METAXALONE
     Indication: MUSCULOSKELETAL DISCOMFORT
     Dosage: 800 MG, 4X/DAY
     Dates: start: 201704

REACTIONS (6)
  - Vision blurred [Unknown]
  - Hot flush [Unknown]
  - Arthralgia [Unknown]
  - Hyperhidrosis [Unknown]
  - Pain in extremity [Unknown]
  - Drug ineffective [Not Recovered/Not Resolved]

NARRATIVE: CASE EVENT DATE: 201705
